FAERS Safety Report 4866876-9 (Version None)
Quarter: 2005Q4

REPORT INFORMATION
  Report Type: 
  Country: None (occurrence: None)
  Receive Date: 20051222
  Receipt Date: 20051202
  Transmission Date: 20060501
  Serious: Yes (Hospitalization)
  Sender: FDA-Public Use
  Company Number: DE200512000579

PATIENT
  Age: 73 Year
  Sex: Female
  Weight: 72 kg

DRUGS (3)
  1. TERIPARATIDE                 (TERIPARATIDE) [Suspect]
     Indication: OSTEOPOROSIS
     Dosage: 20 UG, DAILY (1/D)
     Dates: start: 20040625, end: 20051201
  2. FORTEO PEN    (FORTEO PEN) [Concomitant]
  3. CALCIUM W/VITAMIN D NOS                 (CALCIUM, VITAMIN D NOS) [Concomitant]

REACTIONS (2)
  - OSTEOLYSIS [None]
  - PAIN IN EXTREMITY [None]
